FAERS Safety Report 15059004 (Version 1)
Quarter: 2018Q2

REPORT INFORMATION
  Report Type: Spontaneous
  Country: LU (occurrence: LU)
  Receive Date: 20180625
  Receipt Date: 20180625
  Transmission Date: 20180711
  Serious: Yes (Disabling)
  Sender: FDA-Public Use
  Company Number: LU-BAYER-2018-117173

PATIENT
  Age: 41 Year
  Sex: Male

DRUGS (3)
  1. CIPROXINE 500 MG [Suspect]
     Active Substance: CIPROFLOXACIN
     Indication: INFECTION
  2. CIPROXINE 500 MG [Suspect]
     Active Substance: CIPROFLOXACIN
     Indication: CATHETER SITE INFECTION
     Dosage: UNK
     Dates: start: 2008
  3. CIPROXINE 500 MG [Suspect]
     Active Substance: CIPROFLOXACIN
     Indication: PAIN

REACTIONS (6)
  - Rotator cuff syndrome [Not Recovered/Not Resolved]
  - Tendonitis [Not Recovered/Not Resolved]
  - Burning sensation [Not Recovered/Not Resolved]
  - Pain in extremity [Not Recovered/Not Resolved]
  - Dry eye [Not Recovered/Not Resolved]
  - Nervous system disorder [Not Recovered/Not Resolved]

NARRATIVE: CASE EVENT DATE: 201410
